FAERS Safety Report 4881394-X (Version None)
Quarter: 2005Q4

REPORT INFORMATION
  Report Type: 
  Country: None (occurrence: None)
  Receive Date: 20051201
  Receipt Date: 20050801
  Transmission Date: 20060501
  Serious: No
  Sender: FDA-Public Use
  Company Number: 2005PV000685

PATIENT
  Age: 58 Year
  Sex: Female
  Weight: 79.3795 kg

DRUGS (8)
  1. BYETTA [Suspect]
     Indication: DIABETES MELLITUS NON-INSULIN-DEPENDENT
     Dosage: SEE IMAGE
     Route: 058
     Dates: start: 20050601, end: 20050701
  2. BYETTA [Suspect]
     Indication: DIABETES MELLITUS NON-INSULIN-DEPENDENT
     Dosage: SEE IMAGE
     Route: 058
     Dates: start: 20050701
  3. AMARYL [Concomitant]
  4. IMURAN [Concomitant]
  5. PROGRAF [Concomitant]
  6. AMARYL [Concomitant]
  7. CHOLESTEROL MEDICATIONS [Concomitant]
  8. IMMUNOSUPPRESSIVE AGENTS [Concomitant]

REACTIONS (4)
  - FEELING JITTERY [None]
  - HYPOGLYCAEMIA [None]
  - NAUSEA [None]
  - NERVOUSNESS [None]
